FAERS Safety Report 24380276 (Version 4)
Quarter: 2025Q4

REPORT INFORMATION
  Report Type: Report from Study
  Country: EU (occurrence: EU)
  Receive Date: 20240930
  Receipt Date: 20251202
  Transmission Date: 20260118
  Serious: Yes (Other)
  Sender: TAKEDA
  Company Number: EU-TAKEDA-2024TUS095392

PATIENT
  Sex: Female
  Weight: 91 kg

DRUGS (4)
  1. APADAMTASE ALFA [Suspect]
     Active Substance: APADAMTASE ALFA
     Indication: Thrombotic thrombocytopenic purpura
     Dosage: 40 INTERNATIONAL UNIT/KILOGRAM, Q2WEEKS
  2. APADAMTASE ALFA [Suspect]
     Active Substance: APADAMTASE ALFA
     Dosage: 3500 INTERNATIONAL UNIT, Q2WEEKS
  3. APADAMTASE ALFA [Suspect]
     Active Substance: APADAMTASE ALFA
     Dosage: 3600 INTERNATIONAL UNIT, Q2WEEKS
  4. APADAMTASE ALFA [Suspect]
     Active Substance: APADAMTASE ALFA
     Dosage: 40 INTERNATIONAL UNIT/KILOGRAM, QD

REACTIONS (3)
  - Thrombotic thrombocytopenic purpura [Unknown]
  - Drug ineffective [Unknown]
  - Pregnancy [Unknown]
